FAERS Safety Report 25082345 (Version 1)
Quarter: 2025Q1

REPORT INFORMATION
  Report Type: Report from Study
  Country: US (occurrence: US)
  Receive Date: 20250317
  Receipt Date: 20250317
  Transmission Date: 20250409
  Serious: Yes (Other)
  Sender: ABBVIE
  Company Number: US-ABBVIE-6132664

PATIENT
  Age: 67 Year
  Sex: Female

DRUGS (4)
  1. HUMIRA [Suspect]
     Active Substance: ADALIMUMAB
     Indication: Psoriasis
     Route: 058
     Dates: start: 2020
  2. CYMBALTA [Concomitant]
     Active Substance: DULOXETINE HYDROCHLORIDE
     Indication: Product used for unknown indication
     Dates: start: 2018
  3. Tinazadine [Concomitant]
     Indication: Product used for unknown indication
     Dates: start: 2019
  4. ESTRADIOL [Concomitant]
     Active Substance: ESTRADIOL
     Indication: Product used for unknown indication
     Dates: start: 2010

REACTIONS (10)
  - Brain neoplasm [Unknown]
  - Skin fissures [Not Recovered/Not Resolved]
  - Hip surgery [Unknown]
  - Wound haemorrhage [Not Recovered/Not Resolved]
  - Wound complication [Not Recovered/Not Resolved]
  - Psoriasis [Unknown]
  - Skin ulcer [Unknown]
  - Pain in extremity [Unknown]
  - Therapeutic product effect decreased [Unknown]
  - Memory impairment [Unknown]

NARRATIVE: CASE EVENT DATE: 20240801
